FAERS Safety Report 5987025-X (Version None)
Quarter: 2008Q4

REPORT INFORMATION
  Report Type: 
  Country: None (occurrence: None)
  Receive Date: 20081209
  Receipt Date: 20081203
  Transmission Date: 20090506
  Serious: Yes (Hospitalization)
  Sender: FDA-Public Use
  Company Number: B0548831A

PATIENT
  Age: 52 Year
  Sex: Male

DRUGS (1)
  1. CEFUROXIME [Suspect]
     Indication: DRUG USE FOR UNKNOWN INDICATION
     Dosage: 250MG THREE TIMES PER DAY
     Route: 048

REACTIONS (3)
  - CHROMATURIA [None]
  - HEPATIC FUNCTION ABNORMAL [None]
  - MALAISE [None]
